FAERS Safety Report 7120983-9 (Version None)
Quarter: 2010Q4

REPORT INFORMATION
  Report Type: 
  Country: None (occurrence: None)
  Receive Date: 20101124
  Receipt Date: 20100208
  Transmission Date: 20110411
  Serious: No
  Sender: FDA-Public Use
  Company Number: US-PFIZER INC-2010017302

PATIENT
  Sex: Female

DRUGS (1)
  1. TIKOSYN [Suspect]
     Dosage: 500 UG, 2X/DAY
     Dates: start: 20090201

REACTIONS (2)
  - RASH [None]
  - VISUAL IMPAIRMENT [None]
